FAERS Safety Report 5792157-5 (Version None)
Quarter: 2008Q2

REPORT INFORMATION
  Report Type: 
  Country: None (occurrence: None)
  Receive Date: 20080626
  Receipt Date: 20080609
  Transmission Date: 20081010
  Serious: No
  Sender: FDA-Public Use
  Company Number: US-BOEHRINGER INGELHEIM GMBH, GERMANY-2008-BP-09017BP

PATIENT
  Sex: Female

DRUGS (3)
  1. MIRAPEX [Suspect]
  2. LYRICA [Concomitant]
  3. CYMBALTA [Concomitant]

REACTIONS (1)
  - HALLUCINATION, VISUAL [None]
